FAERS Safety Report 4262979-0 (Version None)
Quarter: 2004Q1

REPORT INFORMATION
  Report Type: 
  Country: None (occurrence: None)
  Receive Date: 20040102
  Receipt Date: 20040102
  Transmission Date: 20041129
  Serious: Yes (Hospitalization)
  Sender: FDA-Public Use
  Company Number: None

PATIENT
  Sex: Male
  Weight: 86 kg

DRUGS (2)
  1. CELEBREX [Suspect]
     Dosage: 100 MG PO BID PRN
  2. WARFARIN SODIUM [Suspect]
     Dosage: 2 MG ON MWR, 4 MG ON OTHER DAYS, CHRONIC

REACTIONS (1)
  - LOWER GASTROINTESTINAL HAEMORRHAGE [None]
